FAERS Safety Report 14262583 (Version 2)
Quarter: 2018Q1

REPORT INFORMATION
  Report Type: Spontaneous
  Country: AU (occurrence: AU)
  Receive Date: 20171208
  Receipt Date: 20180105
  Transmission Date: 20180508
  Serious: Yes (Death, Hospitalization)
  Sender: FDA-Public Use
  Company Number: AU-ACTELION-A-CH2017-163533

PATIENT
  Age: 47 Year
  Sex: Female

DRUGS (2)
  1. OPSUMIT [Suspect]
     Active Substance: MACITENTAN
     Indication: PULMONARY ARTERIAL HYPERTENSION
     Dosage: 10 MG, OD
     Route: 048
     Dates: start: 20170123
  2. SILDENAFIL. [Suspect]
     Active Substance: SILDENAFIL
     Indication: PULMONARY ARTERIAL HYPERTENSION
     Dosage: 50 MG, TID
     Route: 048
     Dates: start: 20170125

REACTIONS (7)
  - Cardiac failure congestive [Fatal]
  - Multiple organ dysfunction syndrome [Fatal]
  - Liver function test abnormal [Fatal]
  - Gastrointestinal haemorrhage [Fatal]
  - Varices oesophageal [Fatal]
  - Shock haemorrhagic [Fatal]
  - Cardiogenic shock [Fatal]
